FAERS Safety Report 14757065 (Version 5)
Quarter: 2020Q2

REPORT INFORMATION
  Report Type: Report from Study
  Country: CA (occurrence: CA)
  Receive Date: 20180413
  Receipt Date: 20200522
  Transmission Date: 20200713
  Serious: Yes (Other)
  Sender: FDA-Public Use
  Company Number: PHHY2018CA062861

PATIENT
  Age: 45 Year
  Sex: Female

DRUGS (2)
  1. SANDOSTATIN LAR DEPOT [Suspect]
     Active Substance: OCTREOTIDE ACETATE
     Dosage: UNK
     Route: 030
     Dates: start: 20200519
  2. SANDOSTATIN LAR DEPOT [Suspect]
     Active Substance: OCTREOTIDE ACETATE
     Indication: DIARRHOEA
     Dosage: 20 MG, (EVERY 6 WEEKS)
     Route: 030
     Dates: start: 20120510

REACTIONS (25)
  - Fatigue [Unknown]
  - Pyrexia [Unknown]
  - Streptococcal infection [Unknown]
  - Constipation [Unknown]
  - Cough [Not Recovered/Not Resolved]
  - Ear pain [Unknown]
  - Perichondritis [Unknown]
  - Injection site haemorrhage [Unknown]
  - Feeling cold [Recovering/Resolving]
  - Pyrexia [Recovered/Resolved]
  - Erythema [Unknown]
  - Inflammation [Unknown]
  - Pain [Unknown]
  - Injection site pain [Recovered/Resolved]
  - Abdominal pain [Unknown]
  - Product use in unapproved indication [Unknown]
  - Crohn^s disease [Unknown]
  - Nephrolithiasis [Unknown]
  - Oropharyngeal pain [Unknown]
  - Injection site pain [Unknown]
  - Influenza like illness [Unknown]
  - Eczema [Recovering/Resolving]
  - Diarrhoea [Unknown]
  - Inappropriate schedule of product administration [Unknown]
  - Back pain [Unknown]

NARRATIVE: CASE EVENT DATE: 2018
